APPROVED DRUG PRODUCT: LIORESAL
Active Ingredient: BACLOFEN
Strength: 0.5MG/ML
Dosage Form/Route: INJECTABLE;INTRATHECAL
Application: N020075 | Product #001 | TE Code: AP
Applicant: AMNEAL PHARMACEUTICALS LLC
Approved: Jun 17, 1992 | RLD: Yes | RS: Yes | Type: RX